FAERS Safety Report 23334034 (Version 1)
Quarter: 2023Q4

REPORT INFORMATION
  Report Type: Spontaneous
  Country: GB (occurrence: GB)
  Receive Date: 20231223
  Receipt Date: 20231223
  Transmission Date: 20240110
  Serious: Yes (Other)
  Sender: FDA-Public Use
  Company Number: None

PATIENT
  Age: 5 Year
  Sex: Male
  Weight: 19 kg

DRUGS (1)
  1. MONTELUKAST [Suspect]
     Active Substance: MONTELUKAST SODIUM
     Indication: Asthma
     Dosage: 4MG AT NIGHT; ;
     Dates: end: 20231001

REACTIONS (7)
  - Aggression [Unknown]
  - Impulsive behaviour [Unknown]
  - Insomnia [Unknown]
  - Mood altered [Unknown]
  - Mood swings [Unknown]
  - Disturbance in attention [Unknown]
  - Abnormal behaviour [Unknown]
